FAERS Safety Report 7179947-1 (Version None)
Quarter: 2010Q4

REPORT INFORMATION
  Report Type: 
  Country: None (occurrence: None)
  Receive Date: 20101221
  Receipt Date: 20101122
  Transmission Date: 20110411
  Serious: No
  Sender: FDA-Public Use
  Company Number: VE-PFIZER INC-2010142139

PATIENT
  Sex: Male

DRUGS (4)
  1. LIPITOR [Suspect]
     Indication: HYPERCHOLESTEROLAEMIA
     Dosage: 80 MG, 1X/DAY
     Route: 048
     Dates: start: 20100501
  2. LIPITOR [Suspect]
     Indication: HYPERTRIGLYCERIDAEMIA
  3. METHYLOL/CEPHALEXIN LYSINATE [Concomitant]
     Indication: EYE DISORDER
     Dosage: UNK
     Dates: start: 20000101
  4. VITALUX PLUS [Concomitant]
     Indication: MULTI-VITAMIN DEFICIENCY
     Dosage: UNK
     Route: 048
     Dates: start: 20100801

REACTIONS (1)
  - NO ADVERSE EVENT [None]
